FAERS Safety Report 21240220 (Version 1)
Quarter: 2022Q3

REPORT INFORMATION
  Report Type: Report from Study
  Country: BR (occurrence: BR)
  Receive Date: 20220822
  Receipt Date: 20220822
  Transmission Date: 20221027
  Serious: Yes (Other)
  Sender: FDA-Public Use
  Company Number: BR-NOVARTISPH-NVSC2021BR009819

PATIENT
  Sex: Female

DRUGS (3)
  1. COSENTYX [Suspect]
     Active Substance: SECUKINUMAB
     Indication: Psoriasis
     Dosage: 300 MG
     Route: 065
     Dates: start: 202011
  2. COSENTYX [Suspect]
     Active Substance: SECUKINUMAB
     Dosage: UNK
     Route: 065
     Dates: start: 20201207
  3. COSENTYX [Suspect]
     Active Substance: SECUKINUMAB
     Dosage: UNK (3 MONTHS AGO)
     Route: 065

REACTIONS (3)
  - Haemorrhage [Unknown]
  - Animal bite [Unknown]
  - Psoriasis [Unknown]
